FAERS Safety Report 25675151 (Version 1)
Quarter: 2025Q3

REPORT INFORMATION
  Report Type: Report from Study
  Country: US (occurrence: US)
  Receive Date: 20250813
  Receipt Date: 20250813
  Transmission Date: 20251021
  Serious: Yes (Hospitalization, Other)
  Sender: SANDOZ
  Company Number: US-002147023-NVSC2020US225798

PATIENT
  Age: 62 Year
  Sex: Female
  Weight: 93.4 kg

DRUGS (116)
  1. CARBOPLATIN [Suspect]
     Active Substance: CARBOPLATIN
     Dosage: 593.5 MG, QD
     Route: 042
     Dates: start: 20200819
  2. CARBOPLATIN [Suspect]
     Active Substance: CARBOPLATIN
     Indication: B-cell lymphoma
     Route: 065
  3. ETOPOSIDE [Suspect]
     Active Substance: ETOPOSIDE
     Dosage: 208 MG, QD
     Route: 042
     Dates: start: 20200818
  4. ETOPOSIDE [Suspect]
     Active Substance: ETOPOSIDE
     Indication: B-cell lymphoma
     Route: 065
  5. IFOSFAMIDE [Suspect]
     Active Substance: IFOSFAMIDE
     Route: 042
     Dates: start: 20200819, end: 20200820
  6. IFOSFAMIDE [Suspect]
     Active Substance: IFOSFAMIDE
     Indication: B-cell lymphoma
     Route: 065
  7. MESNA [Suspect]
     Active Substance: MESNA
     Route: 042
     Dates: start: 20200819, end: 20200820
  8. MESNA [Suspect]
     Active Substance: MESNA
     Indication: B-cell lymphoma
     Route: 065
  9. {NO MATCH FOUND} [Concomitant]
     Indication: Hypophosphataemia
     Route: 065
     Dates: start: 20200816, end: 20200816
  10. {NO MATCH FOUND} [Concomitant]
     Indication: Hypokalaemia
     Route: 065
     Dates: start: 20200826, end: 20200826
  11. Acda [Concomitant]
     Indication: Apheresis
     Route: 065
     Dates: start: 20200818, end: 20200818
  12. ATIVAN [Concomitant]
     Active Substance: LORAZEPAM
     Indication: Anal abscess
     Route: 065
     Dates: start: 20200818, end: 20200903
  13. ATIVAN [Concomitant]
     Active Substance: LORAZEPAM
     Indication: Anxiety
     Route: 065
     Dates: start: 20200831, end: 20200831
  14. CANNABIDIOL [Concomitant]
     Active Substance: CANNABIDIOL
     Indication: Neuropathy peripheral
     Route: 065
     Dates: start: 201908
  15. CATHFLO ACTIVASE [Concomitant]
     Active Substance: ALTEPLASE
     Indication: Prophylaxis
     Route: 065
     Dates: start: 20200813, end: 20200903
  16. CLARITIN [Concomitant]
     Active Substance: LORATADINE
     Indication: Seasonal allergy
     Route: 065
     Dates: start: 2010
  17. COMPAZINE [Concomitant]
     Active Substance: PROCHLORPERAZINE MALEATE
     Indication: Nausea
     Route: 065
     Dates: start: 20200813, end: 20200911
  18. COMPAZINE [Concomitant]
     Active Substance: PROCHLORPERAZINE MALEATE
     Indication: Prophylaxis of nausea and vomiting
  19. CYANOCOBALAMIN [Concomitant]
     Active Substance: CYANOCOBALAMIN
     Indication: Neuropathy peripheral
     Route: 065
     Dates: start: 20200622, end: 20200820
  20. CYMBALTA [Concomitant]
     Active Substance: DULOXETINE HYDROCHLORIDE
     Indication: Neuropathy peripheral
     Route: 065
     Dates: start: 20181217
  21. DECADRON [Concomitant]
     Active Substance: DEXAMETHASONE
     Indication: Chemotherapy side effect prophylaxis
     Route: 065
     Dates: start: 20200818, end: 20200818
  22. DECADRON [Concomitant]
     Active Substance: DEXAMETHASONE
     Indication: Neurotoxicity
     Route: 065
     Dates: start: 20200819, end: 20200820
  23. DECADRON [Concomitant]
     Active Substance: DEXAMETHASONE
     Route: 065
     Dates: start: 20200822, end: 20200822
  24. DEXTROSE [Concomitant]
     Active Substance: DEXTROSE MONOHYDRATE
     Route: 065
  25. DEXTROSE [Concomitant]
     Active Substance: DEXTROSE MONOHYDRATE
     Indication: Hypoglycaemia
     Route: 065
     Dates: start: 20200813, end: 20200903
  26. DIPHENHYDRAMINE [Concomitant]
     Active Substance: DIPHENHYDRAMINE
     Indication: Stomatitis
     Route: 065
     Dates: start: 20200827, end: 20200911
  27. DITROPAN [Concomitant]
     Active Substance: OXYBUTYNIN CHLORIDE
     Indication: Incontinence
     Route: 065
     Dates: start: 20200121
  28. DUONEB [Concomitant]
     Active Substance: ALBUTEROL SULFATE\IPRATROPIUM BROMIDE
     Indication: Dyspnoea
     Route: 065
     Dates: start: 20200818, end: 20200825
  29. ELITEK [Concomitant]
     Active Substance: RASBURICASE
     Indication: Hyperuricaemia
     Route: 065
     Dates: start: 20200813, end: 20200813
  30. EMEND [Concomitant]
     Active Substance: APREPITANT
     Indication: Prophylaxis of nausea and vomiting
     Route: 065
     Dates: start: 20200819, end: 20200819
  31. EPIDIOLEX [Concomitant]
     Active Substance: CANNABIDIOL
     Indication: Neuropathy peripheral
     Route: 065
     Dates: start: 201908
  32. Folvite Active [Concomitant]
     Indication: Folate deficiency
     Route: 065
     Dates: start: 20191123
  33. GLUCAGON RECOMBINANT [Concomitant]
     Active Substance: GLUCAGON
     Indication: Hypoglycaemia
     Route: 065
     Dates: start: 20200813, end: 20200817
  34. GLUCAGON RECOMBINANT [Concomitant]
     Active Substance: GLUCAGON
     Route: 065
     Dates: start: 20200819, end: 20200903
  35. GLUCOPHAGE [Concomitant]
     Active Substance: METFORMIN HYDROCHLORIDE
     Indication: Type 2 diabetes mellitus
     Route: 065
     Dates: start: 2011
  36. GLUTOSE [Concomitant]
     Active Substance: DEXTROSE
     Indication: Hypoglycaemia
     Route: 048
     Dates: start: 20200813, end: 20200817
  37. GLUTOSE [Concomitant]
     Active Substance: DEXTROSE
     Route: 048
     Dates: start: 20200819, end: 20200903
  38. HUMALOG [Concomitant]
     Active Substance: INSULIN LISPRO
     Indication: Type 2 diabetes mellitus
     Route: 065
     Dates: start: 20200812, end: 20200817
  39. HUMALOG [Concomitant]
     Active Substance: INSULIN LISPRO
     Route: 065
     Dates: start: 20200813, end: 20200817
  40. HUMALOG [Concomitant]
     Active Substance: INSULIN LISPRO
     Route: 065
     Dates: start: 20200819, end: 20200824
  41. HUMALOG [Concomitant]
     Active Substance: INSULIN LISPRO
     Route: 065
     Dates: start: 20200820, end: 20200821
  42. HUMALOG [Concomitant]
     Active Substance: INSULIN LISPRO
     Route: 065
     Dates: start: 20200823, end: 20200824
  43. K-TAB [Concomitant]
     Active Substance: POTASSIUM CHLORIDE
     Indication: Hypokalaemia
     Route: 065
     Dates: start: 20200825, end: 20200830
  44. KLOR-CON M10 [Concomitant]
     Active Substance: POTASSIUM CHLORIDE
     Indication: Hypokalaemia
     Route: 065
     Dates: start: 20200815, end: 20200815
  45. KLOR-CON M10 [Concomitant]
     Active Substance: POTASSIUM CHLORIDE
     Route: 065
     Dates: start: 20200816, end: 20200816
  46. KLOR-CON M10 [Concomitant]
     Active Substance: POTASSIUM CHLORIDE
     Route: 065
     Dates: start: 20200818, end: 20200818
  47. KLOR-CON M10 [Concomitant]
     Active Substance: POTASSIUM CHLORIDE
     Route: 065
     Dates: start: 20200825, end: 20200830
  48. LACTATED RINGERS SOLUTION [Concomitant]
     Active Substance: CALCIUM CHLORIDE\POTASSIUM CHLORIDE\SODIUM CHLORIDE\SODIUM LACTATE
     Indication: Fluid replacement
     Route: 065
     Dates: start: 20200827, end: 20200827
  49. LACTATED RINGERS SOLUTION [Concomitant]
     Active Substance: CALCIUM CHLORIDE\POTASSIUM CHLORIDE\SODIUM CHLORIDE\SODIUM LACTATE
     Indication: Hypotension
     Route: 065
     Dates: start: 20200822, end: 20200825
  50. LASIX [Concomitant]
     Active Substance: FUROSEMIDE
     Indication: Hypervolaemia
     Route: 065
     Dates: start: 20200814, end: 20200814
  51. LASIX [Concomitant]
     Active Substance: FUROSEMIDE
     Route: 065
     Dates: start: 20200815, end: 20200815
  52. LASIX [Concomitant]
     Active Substance: FUROSEMIDE
     Route: 065
     Dates: start: 20200817, end: 20200817
  53. LASIX [Concomitant]
     Active Substance: FUROSEMIDE
     Route: 065
     Dates: start: 20200818, end: 20200818
  54. LASIX [Concomitant]
     Active Substance: FUROSEMIDE
     Route: 065
     Dates: start: 20200819, end: 20200819
  55. LASIX [Concomitant]
     Active Substance: FUROSEMIDE
     Route: 065
     Dates: start: 20200820, end: 20200820
  56. LASIX [Concomitant]
     Active Substance: FUROSEMIDE
     Route: 065
     Dates: start: 20200821, end: 20200821
  57. LASIX [Concomitant]
     Active Substance: FUROSEMIDE
     Route: 065
     Dates: start: 20200828, end: 20200828
  58. LEVAQUIN [Concomitant]
     Active Substance: LEVOFLOXACIN
     Indication: White blood cell count
     Route: 065
     Dates: start: 20200815, end: 20200819
  59. LIDOCAINE [Concomitant]
     Active Substance: LIDOCAINE
     Indication: Stomatitis
     Route: 065
     Dates: start: 20200827, end: 20200911
  60. LIPITOR [Concomitant]
     Active Substance: ATORVASTATIN CALCIUM
     Indication: Hypercholesterolaemia
     Route: 065
     Dates: start: 20200814
  61. LOVENOX [Concomitant]
     Active Substance: ENOXAPARIN SODIUM
     Indication: Thrombosis prophylaxis
     Route: 065
     Dates: start: 20200813, end: 20200826
  62. MAGNESIUM OXIDE [Concomitant]
     Active Substance: MAGNESIUM OXIDE
     Indication: Hypomagnesaemia
     Route: 065
     Dates: start: 20200813, end: 20200816
  63. MAGNESIUM OXIDE [Concomitant]
     Active Substance: MAGNESIUM OXIDE
     Route: 065
     Dates: start: 20200816, end: 20200820
  64. MAGNESIUM OXIDE [Concomitant]
     Active Substance: MAGNESIUM OXIDE
     Route: 065
     Dates: start: 20200825, end: 20200829
  65. MAGNESIUM SULFATE [Concomitant]
     Active Substance: MAGNESIUM SULFATE
     Indication: Hypomagnesaemia
     Route: 065
     Dates: start: 20200813, end: 20200814
  66. MAGNESIUM SULFATE [Concomitant]
     Active Substance: MAGNESIUM SULFATE
     Route: 065
     Dates: start: 20200821, end: 20200822
  67. MAGNESIUM SULFATE [Concomitant]
     Active Substance: MAGNESIUM SULFATE
     Route: 065
     Dates: start: 20200822, end: 20200822
  68. MAGNESIUM SULFATE [Concomitant]
     Active Substance: MAGNESIUM SULFATE
     Route: 065
     Dates: start: 20200827, end: 20200827
  69. MAGNESIUM SULFATE [Concomitant]
     Active Substance: MAGNESIUM SULFATE
     Route: 065
     Dates: start: 20200831, end: 20200901
  70. MAGNESIUM SULFATE [Concomitant]
     Active Substance: MAGNESIUM SULFATE
     Route: 065
     Dates: start: 20200815, end: 20200815
  71. MAGNESIUM SULFATE [Concomitant]
     Active Substance: MAGNESIUM SULFATE
     Route: 065
     Dates: start: 20200816, end: 20200816
  72. MAGNESIUM SULFATE [Concomitant]
     Active Substance: MAGNESIUM SULFATE
     Route: 065
     Dates: start: 20200817, end: 20200817
  73. MAGNESIUM SULFATE [Concomitant]
     Active Substance: MAGNESIUM SULFATE
     Route: 065
     Dates: start: 20200819, end: 20200819
  74. MAGNESIUM SULFATE [Concomitant]
     Active Substance: MAGNESIUM SULFATE
     Route: 065
     Dates: start: 20200825, end: 20200825
  75. MELATONIN [Concomitant]
     Active Substance: MELATONIN
     Indication: Anxiety
     Route: 065
     Dates: start: 20200818, end: 20200903
  76. MYCOSTATIN [Concomitant]
     Active Substance: NYSTATIN
     Indication: Oral candidiasis
     Route: 065
     Dates: start: 20200814, end: 20200816
  77. NEUPOGEN [Concomitant]
     Active Substance: FILGRASTIM
     Indication: Febrile neutropenia
     Route: 065
     Dates: start: 20200824, end: 20200904
  78. NEUPOGEN [Concomitant]
     Active Substance: FILGRASTIM
     Indication: Leukopenia
  79. NEUPOGEN [Concomitant]
     Active Substance: FILGRASTIM
     Indication: Neutropenia
  80. NEURONTIN [Concomitant]
     Active Substance: GABAPENTIN
     Indication: Neuropathy peripheral
     Route: 065
     Dates: start: 20200622
  81. K PHOS NEUTRAL [Concomitant]
     Active Substance: POTASSIUM PHOSPHATE, MONOBASIC\SODIUM PHOSPHATE, DIBASIC, ANHYDROUS\SODIUM PHOSPHATE, MONOBASIC, MON
     Indication: Hypophosphataemia
     Route: 065
     Dates: start: 20200818, end: 20200819
  82. Polyvinyl alcohol;Povidone [Concomitant]
     Indication: Dry eye
     Route: 065
     Dates: start: 20200823, end: 20200903
  83. POTASSIUM ACETATE [Concomitant]
     Active Substance: POTASSIUM ACETATE
     Indication: Hypokalaemia
     Route: 065
     Dates: start: 20200826, end: 20200826
  84. POTASSIUM CHLORIDE [Concomitant]
     Active Substance: POTASSIUM CHLORIDE
     Indication: Hypokalaemia
     Route: 065
     Dates: start: 20200814, end: 20200814
  85. POTASSIUM CHLORIDE [Concomitant]
     Active Substance: POTASSIUM CHLORIDE
     Route: 065
     Dates: start: 20200817, end: 20200817
  86. POTASSIUM CHLORIDE [Concomitant]
     Active Substance: POTASSIUM CHLORIDE
     Route: 065
     Dates: start: 20200821, end: 20200822
  87. POTASSIUM CHLORIDE [Concomitant]
     Active Substance: POTASSIUM CHLORIDE
     Route: 065
     Dates: start: 20200822, end: 20200822
  88. POTASSIUM CHLORIDE [Concomitant]
     Active Substance: POTASSIUM CHLORIDE
     Route: 065
     Dates: start: 20200825, end: 20200825
  89. POTASSIUM CHLORIDE [Concomitant]
     Active Substance: POTASSIUM CHLORIDE
     Route: 065
     Dates: start: 20200827, end: 20200828
  90. REFRESH CLASSIC [Concomitant]
     Active Substance: POLYVINYL ALCOHOL\POVIDONE
     Indication: Dry eye
     Route: 065
     Dates: start: 20200823, end: 20200903
  91. SODIUM BICARBONATE [Concomitant]
     Active Substance: SODIUM BICARBONATE
     Indication: Central venous catheterisation
     Route: 065
     Dates: start: 20200818, end: 20200818
  92. SODIUM BICARBONATE [Concomitant]
     Active Substance: SODIUM BICARBONATE
     Indication: Central venous catheterisation
  93. SODIUM PHOSPHATE [Concomitant]
     Active Substance: SODIUM PHOSPHATE
     Indication: Hypophosphataemia
     Route: 065
     Dates: start: 20200816, end: 20200816
  94. SOMINEX [Concomitant]
     Active Substance: DIPHENHYDRAMINE HYDROCHLORIDE
     Indication: Anxiety
     Route: 065
     Dates: start: 20200818, end: 20200903
  95. Sominex ii [Concomitant]
     Indication: Stomatitis
     Route: 065
     Dates: start: 20200827, end: 20200911
  96. SYNTHROID [Concomitant]
     Active Substance: LEVOTHYROXINE SODIUM
     Indication: Hypothyroidism
     Route: 065
     Dates: start: 2000
  97. TYLENOL [Concomitant]
     Active Substance: ACETAMINOPHEN
     Indication: Pain prophylaxis
     Route: 065
     Dates: start: 20200819, end: 20200904
  98. TYLENOL [Concomitant]
     Active Substance: ACETAMINOPHEN
     Indication: Febrile neutropenia
  99. ULTRAM [Concomitant]
     Active Substance: TRAMADOL HYDROCHLORIDE
     Indication: Proctalgia
     Route: 065
     Dates: start: 20200827
  100. ULTRAM [Concomitant]
     Active Substance: TRAMADOL HYDROCHLORIDE
     Indication: Abdominal pain upper
  101. VITAMIN D3 [Concomitant]
     Active Substance: CHOLECALCIFEROL
     Indication: General physical condition
     Route: 065
     Dates: start: 20200424
  102. WHITE PETROLATUM [Concomitant]
     Active Substance: PETROLATUM
     Indication: Dry eye
     Route: 065
     Dates: start: 20200821, end: 20200903
  103. WHITE PETROLATUM [Concomitant]
     Active Substance: PETROLATUM
     Indication: Dry eye
     Route: 065
     Dates: start: 20200821, end: 20200903
  104. XYLOCAINE [Concomitant]
     Active Substance: LIDOCAINE HYDROCHLORIDE
     Indication: Aspiration bone marrow
     Route: 065
     Dates: start: 20200818, end: 20200818
  105. XYLOCAINE [Concomitant]
     Active Substance: LIDOCAINE HYDROCHLORIDE
     Indication: Aspiration bone marrow
     Route: 065
     Dates: start: 20200812, end: 20200812
  106. XYLOCAINE [Concomitant]
     Active Substance: LIDOCAINE HYDROCHLORIDE
     Indication: Aspiration bone marrow
  107. XYLOCAINE [Concomitant]
     Active Substance: LIDOCAINE HYDROCHLORIDE
     Indication: Central venous catheterisation
  108. ZOFRAN [Concomitant]
     Active Substance: ONDANSETRON HYDROCHLORIDE
     Indication: Nausea
     Route: 065
     Dates: start: 20200813, end: 20200819
  109. ZOFRAN [Concomitant]
     Active Substance: ONDANSETRON HYDROCHLORIDE
     Indication: Prophylaxis of nausea and vomiting
     Route: 065
     Dates: start: 20200818, end: 20200820
  110. ZOFRAN [Concomitant]
     Active Substance: ONDANSETRON HYDROCHLORIDE
     Route: 065
     Dates: start: 20200820, end: 20200825
  111. ZOFRAN [Concomitant]
     Active Substance: ONDANSETRON HYDROCHLORIDE
     Route: 065
     Dates: start: 20200823, end: 20200823
  112. ZOSYN [Concomitant]
     Active Substance: PIPERACILLIN SODIUM\TAZOBACTAM SODIUM
     Indication: Anal abscess
     Route: 065
     Dates: start: 20200831, end: 20200901
  113. ZOSYN [Concomitant]
     Active Substance: PIPERACILLIN SODIUM\TAZOBACTAM SODIUM
     Indication: Febrile neutropenia
  114. ZYLOPRIM [Concomitant]
     Active Substance: ALLOPURINOL
     Indication: Hyperuricaemia
     Route: 065
     Dates: start: 20200806, end: 20200813
  115. ZYLOPRIM [Concomitant]
     Active Substance: ALLOPURINOL
     Route: 065
     Dates: start: 20200813, end: 20200829
  116. ZYLOPRIM [Concomitant]
     Active Substance: ALLOPURINOL
     Route: 065
     Dates: start: 20200830, end: 20200901

REACTIONS (3)
  - Febrile neutropenia [Recovered/Resolved]
  - Neurotoxicity [Recovered/Resolved]
  - Hypercalcaemia [Recovered/Resolved]

NARRATIVE: CASE EVENT DATE: 20200812
